FAERS Safety Report 9318002 (Version 1)
Quarter: 2013Q2

REPORT INFORMATION
  Report Type: Spontaneous
  Country: US (occurrence: US)
  Receive Date: 20130530
  Receipt Date: 20130530
  Transmission Date: 20140414
  Serious: No
  Sender: FDA-Public Use
  Company Number: US-GLAXOSMITHKLINE-A0999751A

PATIENT
  Age: 49 Year
  Sex: Female

DRUGS (6)
  1. VENTOLIN [Suspect]
     Indication: CHRONIC OBSTRUCTIVE PULMONARY DISEASE
     Dosage: 2PUFF SIX TIMES PER DAY
     Route: 055
     Dates: start: 2010
  2. SYMBICORT [Concomitant]
  3. SPIRIVA [Concomitant]
  4. OXYGEN [Concomitant]
  5. RISPERDAL [Concomitant]
  6. CELEXA [Concomitant]

REACTIONS (2)
  - Overdose [Not Recovered/Not Resolved]
  - Drug ineffective [Unknown]
